FAERS Safety Report 7497796-1 (Version None)
Quarter: 2011Q2

REPORT INFORMATION
  Report Type: 
  Country: None (occurrence: None)
  Receive Date: 20110524
  Receipt Date: 20091031
  Transmission Date: 20111010
  Serious: Yes (Hospitalization, Other)
  Sender: FDA-Public Use
  Company Number: US-BAYER-200937683NA

PATIENT
  Age: 30 Year
  Sex: Female
  Weight: 77 kg

DRUGS (21)
  1. PROPOFOL [Concomitant]
     Dosage: 125 MG, UNK
     Route: 042
     Dates: start: 19960708, end: 19960708
  2. TRASYLOL [Suspect]
     Indication: CORONARY ARTERY BYPASS
     Dosage: 1 ML, ONCE
     Route: 042
     Dates: start: 19960708, end: 19960708
  3. TRASYLOL [Suspect]
     Dosage: 100 ML PUMP PRIME DOSE
     Route: 042
     Dates: start: 19960708, end: 19960708
  4. TRASYLOL [Suspect]
     Dosage: 100 ML (LOADING)
     Route: 042
     Dates: start: 19960708, end: 19960708
  5. HEPARIN [Concomitant]
     Dosage: UNK
     Route: 042
     Dates: start: 19960708, end: 19960708
  6. DEXTROSE [Concomitant]
     Dosage: 5 G, UNK
     Route: 042
     Dates: start: 19960708, end: 19960708
  7. TRASYLOL [Suspect]
     Dosage: 25 ML/HR INFUSION
     Route: 042
     Dates: start: 19960708, end: 19960708
  8. RESTORIL [Concomitant]
     Dosage: UNK, HS (LONG TERM THERAPY)
     Route: 048
  9. INSULIN HUMULIN [Concomitant]
     Dosage: UNK UNK, BID (LONG TERM THERAPY)
     Route: 058
  10. ACETYLSALICYLIC ACID SRT [Concomitant]
  11. INSULIN LENTE [Concomitant]
     Dosage: UNK, BID (LONG TERM THERAPY)
     Route: 058
  12. VERSED [Concomitant]
     Dosage: 9 MG, UNK
     Route: 042
     Dates: start: 19960708, end: 19960708
  13. PROTAMINE SULFATE [Concomitant]
     Dosage: 215 MG, UNK
     Route: 042
     Dates: start: 19960708, end: 19960708
  14. AMLODIPINE [Concomitant]
     Dosage: 10 MG QD (LONG TERM THERAPY)
     Route: 048
  15. SIMVASTATIN [Concomitant]
     Dosage: 20 MG, QD (LONG TERM THERAPY)
     Route: 048
  16. DOBUTAMINE HYDROCHLORIDE [Concomitant]
     Dosage: 5 UNITS/KG/MIN
     Route: 042
     Dates: start: 19960708, end: 19960708
  17. LOPRESSOR [Concomitant]
     Dosage: 50 MG, BID (LONG TERM THERAPY)
     Route: 048
  18. ISORDIL [Concomitant]
     Dosage: 20 MG, TID (LONG TERM THERAPY)
     Route: 048
  19. PAVULON [Concomitant]
     Dosage: 24 MG, UNK
     Route: 042
     Dates: start: 19960708, end: 19960708
  20. BUMEX [Concomitant]
     Dosage: UNK
  21. FENTANYL [Concomitant]
     Dosage: UNK
     Route: 042
     Dates: start: 19960708, end: 19960708

REACTIONS (5)
  - PAIN [None]
  - RENAL FAILURE [None]
  - INJURY [None]
  - UNEVALUABLE EVENT [None]
  - RENAL FAILURE ACUTE [None]
